FAERS Safety Report 23501511 (Version 1)
Quarter: 2024Q1

REPORT INFORMATION
  Report Type: Spontaneous
  Country: CN (occurrence: CN)
  Receive Date: 20240208
  Receipt Date: 20240208
  Transmission Date: 20240409
  Serious: Yes (Life-Threatening)
  Sender: FDA-Public Use
  Company Number: CN-SHANGHAI JUNSHI BIOSCIENCES CO., LTD.-CN2024009254

PATIENT

DRUGS (3)
  1. TORIPALIMAB [Suspect]
     Active Substance: TORIPALIMAB
     Indication: Malignant melanoma
     Dosage: 240 MG (D1)
     Route: 041
     Dates: start: 20231228, end: 20231228
  2. ZOLEDRONIC ACID [Suspect]
     Active Substance: ZOLEDRONIC ACID
     Indication: Bone loss
     Dosage: 4 MG
     Route: 041
     Dates: start: 20231227, end: 20231227
  3. CATEQUENTINIB [Suspect]
     Active Substance: CATEQUENTINIB
     Indication: Malignant melanoma
     Dosage: 12 MG, QD, D1-D14
     Route: 048
     Dates: start: 20231228, end: 20240110

REACTIONS (1)
  - Platelet count decreased [Recovering/Resolving]

NARRATIVE: CASE EVENT DATE: 20240118
